FAERS Safety Report 8557795-5 (Version None)
Quarter: 2012Q3

REPORT INFORMATION
  Report Type: 
  Country: None (occurrence: None)
  Receive Date: 20120801
  Receipt Date: 20120726
  Transmission Date: 20120928
  Serious: Yes (Other)
  Sender: FDA-Public Use
  Company Number: GB-BAYER-2012-046212

PATIENT
  Age: 44 Year
  Sex: Female

DRUGS (4)
  1. TRAZODONE HYDROCHLORIDE [Concomitant]
     Dosage: UNK
     Dates: start: 20120301
  2. BETASERON [Suspect]
     Dosage: 250 ?G, QOD
     Route: 058
     Dates: start: 20120701
  3. TRAZODONE HYDROCHLORIDE [Concomitant]
     Dosage: 100 MG, UNK
     Dates: start: 20120511
  4. BETASERON [Suspect]
     Indication: MULTIPLE SCLEROSIS
     Dosage: UNK
     Route: 058
     Dates: end: 20120509

REACTIONS (7)
  - HALLUCINATION, AUDITORY [None]
  - DEPRESSION [None]
  - OBSESSIVE-COMPULSIVE DISORDER [None]
  - HALLUCINATION [None]
  - AGITATION [None]
  - MENTAL DISORDER [None]
  - INFLUENZA LIKE ILLNESS [None]
